FAERS Safety Report 9470547 (Version 1)
Quarter: 2013Q3

REPORT INFORMATION
  Report Type: Spontaneous
  Country: US (occurrence: US)
  Receive Date: 20130822
  Receipt Date: 20130822
  Transmission Date: 20140515
  Serious: Yes (Other)
  Sender: FDA-Public Use
  Company Number: US-PFIZER INC-2013241068

PATIENT
  Age: 82 Year
  Sex: Male
  Weight: 64.4 kg

DRUGS (1)
  1. VIAGRA [Suspect]
     Dosage: UNK

REACTIONS (2)
  - Movement disorder [Unknown]
  - Penis disorder [Unknown]
